FAERS Safety Report 23125310 (Version 1)
Quarter: 2023Q4

REPORT INFORMATION
  Report Type: Spontaneous
  Country: FR (occurrence: FR)
  Receive Date: 20231030
  Receipt Date: 20231030
  Transmission Date: 20240110
  Serious: Yes (Other)
  Sender: FDA-Public Use
  Company Number: None

PATIENT
  Age: 10 Year
  Sex: Female
  Weight: 72.3 kg

DRUGS (2)
  1. TRAMETINIB [Suspect]
     Active Substance: TRAMETINIB
     Indication: Astrocytoma, low grade
     Dosage: 1.8 MG, QD (INCONNUE, DIMETHYLSUFLOXYDE DE)
     Route: 048
     Dates: start: 20231007
  2. MEKINIST [Suspect]
     Active Substance: TRAMETINIB DIMETHYL SULFOXIDE
     Indication: Astrocytoma, low grade
     Dosage: UNK (INCONNUE, DIMETHYLSUFLOXYDE DE, COMPRIM? PELLICUL?)
     Route: 048
     Dates: start: 20220301, end: 202204

REACTIONS (2)
  - Dermatitis acneiform [Recovered/Resolved]
  - Dermatitis acneiform [Not Recovered/Not Resolved]

NARRATIVE: CASE EVENT DATE: 20220315
